FAERS Safety Report 8919916 (Version 1)
Quarter: 2012Q4

REPORT INFORMATION
  Report Type: 
  Country: BE (occurrence: BE)
  Receive Date: 20121121
  Receipt Date: 20121121
  Transmission Date: 20130627
  Serious: Yes (Hospitalization)
  Sender: FDA-Public Use
  Company Number: BE-PAR PHARMACEUTICAL, INC-2012SCPR004714

PATIENT

DRUGS (4)
  1. LEVETIRACETAM [Suspect]
     Indication: CONVULSION
     Dosage: UNK, Unknown
     Route: 065
  2. LAMOTRIGINE [Suspect]
     Indication: CONVULSION
     Dosage: UNK, Unknown
     Route: 065
  3. GABAPENTIN [Suspect]
     Indication: CONVULSION
     Dosage: UNK, Unknown
     Route: 065
  4. VALPROIC ACID [Suspect]
     Indication: CONVULSION
     Dosage: UNK, Unknown
     Route: 065

REACTIONS (8)
  - Hypothermia [Recovered/Resolved]
  - Motor dysfunction [Recovering/Resolving]
  - Mental status changes [Recovering/Resolving]
  - Chest X-ray abnormal [Unknown]
  - Oxygen saturation decreased [Recovering/Resolving]
  - Hypotension [Recovering/Resolving]
  - Apathy [Recovering/Resolving]
  - Decreased appetite [Recovering/Resolving]
